FAERS Safety Report 24605156 (Version 3)
Quarter: 2025Q2

REPORT INFORMATION
  Report Type: Spontaneous
  Country: US (occurrence: US)
  Receive Date: 20241111
  Receipt Date: 20250421
  Transmission Date: 20250717
  Serious: No
  Sender: PFIZER
  Company Number: US-PFIZER INC-202400278328

PATIENT
  Age: 71 Year
  Sex: Female

DRUGS (5)
  1. LITFULO [Suspect]
     Active Substance: RITLECITINIB TOSYLATE
     Indication: Alopecia
     Route: 048
     Dates: start: 20241119
  2. LITFULO [Suspect]
     Active Substance: RITLECITINIB TOSYLATE
     Indication: Alopecia areata
     Dosage: 50 MG, DAILY (1 CAPSULE)
     Dates: start: 20250205
  3. MAGNESIUM [Concomitant]
     Active Substance: MAGNESIUM
  4. VITAMIN D NOS [Concomitant]
     Active Substance: CHOLECALCIFEROL\ERGOCALCIFEROL
  5. MINOXIDIL [Concomitant]
     Active Substance: MINOXIDIL

REACTIONS (3)
  - Eye swelling [Unknown]
  - Muscle spasms [Unknown]
  - Swelling of eyelid [Unknown]
